FAERS Safety Report 4837044-1 (Version None)
Quarter: 2005Q4

REPORT INFORMATION
  Report Type: 
  Country: None (occurrence: None)
  Receive Date: 20051125
  Receipt Date: 20051122
  Transmission Date: 20060501
  Serious: Yes (Other)
  Sender: FDA-Public Use
  Company Number: GB-RB-2356-2005

PATIENT
  Age: 70 Year
  Sex: Female

DRUGS (3)
  1. BUPRENORPHINE HCL [Suspect]
     Indication: PAIN
     Route: 048
  2. BUPRENORPHINE HCL [Suspect]
     Route: 065
  3. MEDICINALPRODUCT NOT SPECIFIED BY SENDER [Concomitant]
     Indication: DRUG USE FOR UNKNOWN INDICATION
     Dosage: DOSAGE UNKNOWN
     Route: 065

REACTIONS (5)
  - DEAFNESS [None]
  - INCONTINENCE [None]
  - MICTURITION DISORDER [None]
  - SKIN EXFOLIATION [None]
  - URETHRAL DISCHARGE [None]
